FAERS Safety Report 15015573 (Version 1)
Quarter: 2018Q2

REPORT INFORMATION
  Report Type: Spontaneous
  Country: US (occurrence: US)
  Receive Date: 20180530
  Receipt Date: 20180530
  Transmission Date: 20180711
  Serious: Yes (Life-Threatening, Hospitalization, Other)
  Sender: FDA-Public Use
  Company Number: None

PATIENT
  Age: 29 Year
  Sex: Female

DRUGS (1)
  1. LIDOCAINE AND EPINEPHRINE [Suspect]
     Active Substance: EPINEPHRINE\LIDOCAINE HYDROCHLORIDE
     Route: 058

REACTIONS (4)
  - Ventricular tachycardia [None]
  - Stress cardiomyopathy [None]
  - Ejection fraction decreased [None]
  - Pulmonary oedema [None]

NARRATIVE: CASE EVENT DATE: 20171221
